FAERS Safety Report 6106369-4 (Version None)
Quarter: 2009Q1

REPORT INFORMATION
  Report Type: 
  Country: None (occurrence: None)
  Receive Date: 20090306
  Receipt Date: 20090226
  Transmission Date: 20090719
  Serious: Yes (Death, Congenital Anomaly, Other)
  Sender: FDA-Public Use
  Company Number: MW-B.I. PHARMACEUTICALS,INC./RIDGEFIELD-2008-DE-01397GD

PATIENT

DRUGS (8)
  1. NEVIRAPINE [Suspect]
     Indication: PROPHYLAXIS AGAINST HIV INFECTION
     Route: 064
  2. NEVIRAPINE [Suspect]
     Indication: HUMAN IMMUNODEFICIENCY VIRUS TRANSMISSION
     Dosage: 2 MG/KG
     Route: 048
  3. NEVIRAPINE [Suspect]
     Indication: DRUG EXPOSURE VIA BREAST MILK
     Dosage: 2 MG/KG (SCHEDULED FOR 1 WEEK), THEN 4 MG/KG (SCHEDULED FOR 12 WEEKS)
     Route: 048
  4. NEVIRAPINE [Suspect]
     Route: 063
  5. ZIDOVUDINE [Suspect]
     Indication: PROPHYLAXIS AGAINST HIV INFECTION
     Dosage: 8 MG/KG
     Route: 048
  6. ZIDOVUDINE [Suspect]
     Indication: HUMAN IMMUNODEFICIENCY VIRUS TRANSMISSION
     Dosage: 4 MG/KG TWICE DAILY (SCHEDULED FOR 4 WEEK), THEN 4 MG/KG 3 TIMES DAILY (SCHEDULED FOR 3 WEEKS), THEN
     Route: 048
  7. STAVUDINE [Suspect]
     Indication: DRUG EXPOSURE VIA BREAST MILK
     Route: 063
  8. LAMIVUDINE [Suspect]
     Indication: DRUG EXPOSURE VIA BREAST MILK
     Route: 063

REACTIONS (20)
  - ANAEMIA [None]
  - BLOOD DISORDER [None]
  - CONGENITAL ANOMALY [None]
  - DEATH [None]
  - GASTROENTERITIS [None]
  - GASTROINTESTINAL DISORDER [None]
  - HEPATOTOXICITY [None]
  - HIV INFECTION [None]
  - INFECTION [None]
  - INJURY [None]
  - MALARIA [None]
  - MALNUTRITION [None]
  - MENINGITIS [None]
  - NERVOUS SYSTEM DISORDER [None]
  - NEUTROPENIA [None]
  - PNEUMONIA [None]
  - RESPIRATORY DISORDER [None]
  - SEPSIS [None]
  - SKIN TOXICITY [None]
  - TUBERCULOSIS [None]
